FAERS Safety Report 11539183 (Version 4)
Quarter: 2016Q1

REPORT INFORMATION
  Report Type: Report from Study
  Country: US (occurrence: US)
  Receive Date: 20150923
  Receipt Date: 20160321
  Transmission Date: 20160525
  Serious: Yes (Hospitalization, Other)
  Sender: FDA-Public Use
  Company Number: US-AMGEN-USASL2015097543

PATIENT
  Age: 66 Year
  Sex: Female

DRUGS (1)
  1. ENBREL [Suspect]
     Active Substance: ETANERCEPT
     Indication: RHEUMATOID ARTHRITIS
     Dosage: UNK
     Route: 065
     Dates: start: 20040201

REACTIONS (7)
  - Nerve block [Unknown]
  - Bronchitis [Unknown]
  - Myocardial infarction [Unknown]
  - Intervertebral disc operation [Unknown]
  - Pneumonia [Unknown]
  - Spinal operation [Unknown]
  - Urinary tract infection [Unknown]
